FAERS Safety Report 24361556 (Version 1)
Quarter: 2024Q3

REPORT INFORMATION
  Report Type: Spontaneous
  Country: US (occurrence: US)
  Receive Date: 20240925
  Receipt Date: 20240925
  Transmission Date: 20241016
  Serious: Yes (Hospitalization, Other)
  Sender: HIKMA
  Company Number: US-HIKMA PHARMACEUTICALS-US-H14001-24-08713

PATIENT
  Sex: Female

DRUGS (14)
  1. GEMCITABINE [Suspect]
     Active Substance: GEMCITABINE
     Indication: Invasive ductal breast carcinoma
     Dosage: THREE CYCLES
     Route: 065
     Dates: start: 202207, end: 202210
  2. GEMCITABINE [Suspect]
     Active Substance: GEMCITABINE
     Indication: Metastases to bone
  3. GEMCITABINE [Suspect]
     Active Substance: GEMCITABINE
     Indication: Metastases to lung
  4. GEMCITABINE [Suspect]
     Active Substance: GEMCITABINE
     Indication: Metastases to lymph nodes
  5. GEMCITABINE [Suspect]
     Active Substance: GEMCITABINE
     Indication: Breast cancer metastatic
  6. GEMCITABINE [Suspect]
     Active Substance: GEMCITABINE
     Indication: HER2 positive breast cancer
  7. GEMCITABINE [Suspect]
     Active Substance: GEMCITABINE
     Indication: Hormone receptor positive breast cancer
  8. MARGETUXIMAB [Suspect]
     Active Substance: MARGETUXIMAB
     Indication: Invasive ductal breast carcinoma
     Dosage: UNKNOWN
     Route: 065
     Dates: start: 202207, end: 202210
  9. MARGETUXIMAB [Suspect]
     Active Substance: MARGETUXIMAB
     Indication: Metastases to bone
  10. MARGETUXIMAB [Suspect]
     Active Substance: MARGETUXIMAB
     Indication: Metastases to lung
  11. MARGETUXIMAB [Suspect]
     Active Substance: MARGETUXIMAB
     Indication: Metastases to lymph nodes
  12. MARGETUXIMAB [Suspect]
     Active Substance: MARGETUXIMAB
     Indication: Breast cancer metastatic
  13. MARGETUXIMAB [Suspect]
     Active Substance: MARGETUXIMAB
     Indication: HER2 positive breast cancer
  14. MARGETUXIMAB [Suspect]
     Active Substance: MARGETUXIMAB
     Indication: Hormone receptor positive breast cancer

REACTIONS (2)
  - Condition aggravated [Unknown]
  - Ascites [Unknown]
